FAERS Safety Report 6821110-5 (Version None)
Quarter: 2010Q3

REPORT INFORMATION
  Report Type: 
  Country: None (occurrence: None)
  Receive Date: 20100707
  Receipt Date: 20080318
  Transmission Date: 20110219
  Serious: No
  Sender: FDA-Public Use
  Company Number: US-PFIZER INC-2008025422

PATIENT
  Sex: Female
  Weight: 59.09 kg

DRUGS (1)
  1. ZOLOFT [Suspect]
     Indication: PANIC ATTACK
     Route: 048

REACTIONS (2)
  - PHOTOSENSITIVITY REACTION [None]
  - RASH VESICULAR [None]
